FAERS Safety Report 6661755-9 (Version None)
Quarter: 2010Q1

REPORT INFORMATION
  Report Type: 
  Country: None (occurrence: None)
  Receive Date: 20100331
  Receipt Date: 20090604
  Transmission Date: 20100710
  Serious: Yes (Other)
  Sender: FDA-Public Use
  Company Number: US-BRISTOL-MYERS SQUIBB COMPANY-14645345

PATIENT
  Age: 56 Year
  Sex: Female
  Weight: 47 kg

DRUGS (14)
  1. ERBITUX [Suspect]
     Indication: TONGUE NEOPLASM MALIGNANT STAGE UNSPECIFIED
     Dosage: ON 02JUN09: 500MG IV INFUSION GIVEN:50ML/HR INC TO 75ML/HR THEN DEC TO 25ML/HR
     Route: 042
     Dates: start: 20090601, end: 20090601
  2. ERBITUX [Suspect]
     Indication: METASTASIS
     Dosage: ON 02JUN09: 500MG IV INFUSION GIVEN:50ML/HR INC TO 75ML/HR THEN DEC TO 25ML/HR
     Route: 042
     Dates: start: 20090601, end: 20090601
  3. DURAGESIC-100 [Concomitant]
  4. ALPRAZOLAM [Concomitant]
  5. AMITRIPTYLINE [Concomitant]
  6. PREVACID [Concomitant]
  7. AMIDRINE [Concomitant]
  8. LIPITOR [Concomitant]
  9. HYDROCODONE BITARTRATE [Concomitant]
     Dosage: 1DF=7.5MG/500MG
  10. TYLENOL PM [Concomitant]
  11. BENADRYL [Concomitant]
     Indication: PREMEDICATION
  12. ZANTAC [Concomitant]
     Indication: PREMEDICATION
  13. HEXADROL [Concomitant]
     Indication: PREMEDICATION
  14. ALOXI [Concomitant]
     Indication: PREMEDICATION

REACTIONS (1)
  - INFUSION RELATED REACTION [None]
